FAERS Safety Report 10475287 (Version 35)
Quarter: 2019Q3

REPORT INFORMATION
  Report Type: Report from Study
  Country: CA (occurrence: CA)
  Receive Date: 20140925
  Receipt Date: 20190830
  Transmission Date: 20191004
  Serious: Yes (Hospitalization, Other)
  Sender: FDA-Public Use
  Company Number: PHHY2014CA118346

PATIENT
  Age: 66 Year
  Sex: Male

DRUGS (3)
  1. SANDOSTATIN [Suspect]
     Active Substance: OCTREOTIDE ACETATE
     Indication: NEUROENDOCRINE TUMOUR
     Dosage: 100 UG, TID
     Route: 058
     Dates: start: 20161026
  2. ATENOLOL. [Concomitant]
     Active Substance: ATENOLOL
     Indication: PRODUCT USED FOR UNKNOWN INDICATION
     Dosage: 50 MG, QD
     Route: 065
  3. SANDOSTATIN LAR DEPOT [Suspect]
     Active Substance: OCTREOTIDE ACETATE
     Indication: NEUROENDOCRINE TUMOUR
     Dosage: 30 MG, (EVERY 3 WEEKS)
     Route: 030
     Dates: start: 20140729

REACTIONS (30)
  - Abdominal pain [Recovered/Resolved]
  - Affective disorder [Unknown]
  - Blood pressure increased [Unknown]
  - Abdominal distension [Unknown]
  - Obstruction gastric [Unknown]
  - Small intestinal obstruction [Unknown]
  - Skin lesion [Unknown]
  - Blood pressure systolic increased [Unknown]
  - Abdominal distension [Recovered/Resolved]
  - Diarrhoea [Not Recovered/Not Resolved]
  - Neuroendocrine tumour [Unknown]
  - Malaise [Recovering/Resolving]
  - Blood glucose fluctuation [Unknown]
  - Blood magnesium decreased [Unknown]
  - Inappropriate schedule of product administration [Unknown]
  - Blood pressure diastolic decreased [Unknown]
  - Herpes zoster [Unknown]
  - Bowel movement irregularity [Unknown]
  - Flatulence [Unknown]
  - Skin warm [Unknown]
  - Flushing [Not Recovered/Not Resolved]
  - Rash [Recovering/Resolving]
  - Skin swelling [Recovering/Resolving]
  - Malignant neoplasm progression [Unknown]
  - Acute kidney injury [Unknown]
  - Arthralgia [Recovered/Resolved]
  - Musculoskeletal discomfort [Unknown]
  - Myalgia [Unknown]
  - Erythema [Recovering/Resolving]
  - Anaemia [Unknown]

NARRATIVE: CASE EVENT DATE: 2015
